FAERS Safety Report 6887396-6 (Version None)
Quarter: 2010Q3

REPORT INFORMATION
  Report Type: 
  Country: None (occurrence: None)
  Receive Date: 20100730
  Receipt Date: 20100127
  Transmission Date: 20110219
  Serious: No
  Sender: FDA-Public Use
  Company Number: A0841688A

PATIENT
  Sex: Female

DRUGS (1)
  1. IMITREX [Suspect]
     Indication: MIGRAINE
     Route: 048
     Dates: start: 20090101

REACTIONS (1)
  - DRUG INEFFECTIVE [None]
